FAERS Safety Report 8205700-3 (Version None)
Quarter: 2012Q1

REPORT INFORMATION
  Report Type: 
  Country: None (occurrence: None)
  Receive Date: 20120313
  Receipt Date: 20120301
  Transmission Date: 20120608
  Serious: Yes (Other)
  Sender: FDA-Public Use
  Company Number: DE-ELI_LILLY_AND_COMPANY-DE201109000579

PATIENT
  Age: 61 Year
  Sex: Female

DRUGS (6)
  1. FORTEO [Suspect]
     Dosage: UNK, QOD
     Route: 058
     Dates: start: 20110829, end: 20111231
  2. INSULIN [Concomitant]
  3. CARDIAC THERAPY [Concomitant]
  4. FORTEO [Suspect]
     Indication: OSTEOPOROSIS
     Dosage: UNK
     Route: 058
     Dates: start: 20110713, end: 20110720
  5. TORSEMIDE [Concomitant]
  6. MORPHINE [Concomitant]

REACTIONS (8)
  - CONSTIPATION [None]
  - OEDEMA PERIPHERAL [None]
  - INAPPROPRIATE SCHEDULE OF DRUG ADMINISTRATION [None]
  - HEART RATE INCREASED [None]
  - ABDOMINAL DISTENSION [None]
  - FACE OEDEMA [None]
  - RASH VESICULAR [None]
  - PRURITUS GENERALISED [None]
